FAERS Safety Report 4950323-2 (Version None)
Quarter: 2006Q1

REPORT INFORMATION
  Report Type: 
  Country: None (occurrence: None)
  Receive Date: 20060322
  Receipt Date: 20060102
  Transmission Date: 20060701
  Serious: Yes (Congenital Anomaly, Other)
  Sender: FDA-Public Use
  Company Number: PHEH2006US00466

PATIENT

DRUGS (1)
  1. FEMARA [Suspect]
     Route: 064

REACTIONS (7)
  - ASCITES [None]
  - CONGENITAL ANOMALY [None]
  - CONGENITAL GENITAL MALFORMATION [None]
  - DRUG EXPOSURE BEFORE PREGNANCY [None]
  - EAGLE BARRETT SYNDROME [None]
  - KIDNEY MALFORMATION [None]
  - URETHRAL VALVES [None]
